FAERS Safety Report 12856075 (Version 1)
Quarter: 2016Q4

REPORT INFORMATION
  Report Type: Spontaneous
  Country: US (occurrence: US)
  Receive Date: 20161018
  Receipt Date: 20161018
  Transmission Date: 20170207
  Serious: No
  Sender: FDA-Public Use
  Company Number: US-ASTRAZENECA-2016SF07941

PATIENT
  Age: 69 Year
  Sex: Female

DRUGS (1)
  1. NEXIUM [Suspect]
     Active Substance: ESOMEPRAZOLE MAGNESIUM
     Indication: DYSPHAGIA
     Route: 065
     Dates: start: 201409

REACTIONS (3)
  - Diarrhoea [Unknown]
  - Product use issue [Unknown]
  - Flatulence [Unknown]

NARRATIVE: CASE EVENT DATE: 201409
